FAERS Safety Report 5366711-9 (Version None)
Quarter: 2007Q2

REPORT INFORMATION
  Report Type: 
  Country: None (occurrence: None)
  Receive Date: 20070622
  Receipt Date: 20060608
  Transmission Date: 20071010
  Serious: No
  Sender: FDA-Public Use
  Company Number: US-ASTRAZENECA-2005UW15016

PATIENT
  Age: 1003 Month
  Sex: Female

DRUGS (6)
  1. RHINOCORT [Suspect]
     Indication: SINUS DISORDER
     Dosage: 2-3 SPRAYS PER NOSTRIL BID
     Route: 045
  2. BENADRYL [Concomitant]
  3. SALINE NASAL SPRAY [Concomitant]
     Route: 045
  4. NEXIUM [Concomitant]
     Route: 048
  5. ZOFRAN [Concomitant]
  6. CARDENE [Concomitant]

REACTIONS (5)
  - HEADACHE [None]
  - NAUSEA [None]
  - OESOPHAGEAL PAIN [None]
  - PHARYNGOLARYNGEAL PAIN [None]
  - POSTNASAL DRIP [None]
